FAERS Safety Report 6063710-9 (Version None)
Quarter: 2009Q1

REPORT INFORMATION
  Report Type: 
  Country: None (occurrence: None)
  Receive Date: 20090130
  Receipt Date: 20090115
  Transmission Date: 20090719
  Serious: Yes (Other)
  Sender: FDA-Public Use
  Company Number: 2008BM000245

PATIENT
  Age: 71 Year
  Sex: Male
  Weight: 103.1 kg

DRUGS (4)
  1. 6R-BH4 (SAPROPTERIN DIHYDROCHLORIDE) TABLET, 10MG [Suspect]
     Indication: ALBUMINURIA
     Dosage: 400 MG;BID;PO
     Route: 048
     Dates: start: 20081006, end: 20081211
  2. ASCORBIC ACID [Suspect]
     Indication: ALBUMINURIA
     Dosage: 500 MG;BID;PO
     Route: 048
     Dates: start: 20081121, end: 20081208
  3. LISINOPRIL [Suspect]
     Dosage: 40 MG;QD;PO
     Route: 048
     Dates: start: 20061121, end: 20081215
  4. METFORMIN HCL [Concomitant]

REACTIONS (9)
  - ACUTE PRERENAL FAILURE [None]
  - BLOOD SODIUM INCREASED [None]
  - CALCULUS URETERIC [None]
  - HYPOPHAGIA [None]
  - HYPOVOLAEMIA [None]
  - ISCHAEMIA [None]
  - NEPHROLITHIASIS [None]
  - PAIN [None]
  - URINE SODIUM INCREASED [None]
